FAERS Safety Report 6894717-7 (Version None)
Quarter: 2010Q3

REPORT INFORMATION
  Report Type: 
  Country: None (occurrence: None)
  Receive Date: 20100730
  Receipt Date: 20100730
  Transmission Date: 20110219
  Serious: Yes (Life-Threatening, Other)
  Sender: FDA-Public Use
  Company Number: None

PATIENT
  Sex: Male
  Weight: 81.6475 kg

DRUGS (2)
  1. PROCARDIA XL [Suspect]
     Indication: ANGINA PECTORIS
     Dosage: 30MG 1 QD PO
     Route: 048
     Dates: start: 20000101, end: 20100101
  2. NITRO-DUR [Suspect]
     Indication: ANGINA PECTORIS
     Dosage: 0.2MG PRN PO
     Route: 048
     Dates: start: 20000101, end: 20100101

REACTIONS (1)
  - CHEST PAIN [None]
